FAERS Safety Report 16993438 (Version 1)
Quarter: 2019Q4

REPORT INFORMATION
  Report Type: Report from Study
  Country: FR (occurrence: FR)
  Receive Date: 20191105
  Receipt Date: 20191105
  Transmission Date: 20200122
  Serious: Yes (Hospitalization)
  Sender: FDA-Public Use
  Company Number: FR-PFIZER INC-2019128190

PATIENT
  Age: 71 Year
  Sex: Female

DRUGS (5)
  1. NEURONTIN [Concomitant]
     Active Substance: GABAPENTIN
     Indication: FACIAL NEURALGIA
     Dosage: UNK
     Dates: start: 20140609
  2. ACTIQ [Concomitant]
     Active Substance: FENTANYL CITRATE
     Dosage: 400 MG, DAILY
     Route: 048
     Dates: start: 20160923, end: 20160923
  3. ACTIQ [Concomitant]
     Active Substance: FENTANYL CITRATE
     Indication: ABDOMINAL PAIN
     Dosage: 400 MG, DAILY
     Route: 048
     Dates: start: 20160523, end: 20160523
  4. SUTENT [Suspect]
     Active Substance: SUNITINIB MALATE
     Indication: GASTROINTESTINAL STROMAL TUMOUR
     Dosage: 50 MG, 1X/DAY
     Route: 048
     Dates: start: 20160120, end: 20161019
  5. DOLIPRANE [Concomitant]
     Active Substance: ACETAMINOPHEN
     Indication: ABDOMINAL PAIN
     Dosage: UNK
     Dates: start: 20160712, end: 20160915

REACTIONS (2)
  - Congestive cardiomyopathy [Recovering/Resolving]
  - Cardiac failure acute [Recovering/Resolving]

NARRATIVE: CASE EVENT DATE: 20161014
